FAERS Safety Report 9972680 (Version 1)
Quarter: 2014Q1

REPORT INFORMATION
  Report Type: Spontaneous
  Country: US (occurrence: US)
  Receive Date: 20140306
  Receipt Date: 20140306
  Transmission Date: 20141002
  Serious: No
  Sender: FDA-Public Use
  Company Number: US-009507513-1403USA001234

PATIENT
  Sex: Male

DRUGS (2)
  1. PROPECIA [Suspect]
     Indication: ALOPECIA
     Route: 048
  2. FINASTERIDE [Suspect]
     Indication: ALOPECIA
     Route: 048

REACTIONS (2)
  - Alopecia [Unknown]
  - Alopecia [Unknown]
